FAERS Safety Report 5134651-6 (Version None)
Quarter: 2006Q4

REPORT INFORMATION
  Report Type: 
  Country: None (occurrence: None)
  Receive Date: 20061025
  Receipt Date: 20061016
  Transmission Date: 20070319
  Serious: Yes (Hospitalization)
  Sender: FDA-Public Use
  Company Number: ES-GLAXOSMITHKLINE-B0442861A

PATIENT
  Age: 27 Year
  Sex: Female

DRUGS (4)
  1. LAMIVUDINE [Suspect]
     Indication: HIV INFECTION
     Route: 065
  2. STAVUDINE [Suspect]
     Route: 065
  3. LOPINAVIR + RITONAVIR [Suspect]
     Route: 065
  4. PAROMOMYCIN [Concomitant]
     Route: 065

REACTIONS (8)
  - ABDOMINAL PAIN [None]
  - CROHN'S DISEASE [None]
  - ILEAL STENOSIS [None]
  - IMMUNE RECONSTITUTION SYNDROME [None]
  - INTESTINAL OBSTRUCTION [None]
  - LYMPHADENOPATHY [None]
  - PYREXIA [None]
  - VOMITING [None]
